FAERS Safety Report 18780524 (Version 1)
Quarter: 2021Q1

REPORT INFORMATION
  Report Type: Spontaneous
  Country: US (occurrence: US)
  Receive Date: 20210122
  Receipt Date: 20210122
  Transmission Date: 20210419
  Serious: Yes (Other)
  Sender: FDA-Public Use
  Company Number: None

PATIENT
  Age: 42 Year
  Sex: Female
  Weight: 108 kg

DRUGS (3)
  1. FISH OIL [Concomitant]
     Active Substance: FISH OIL
  2. ZYRTEC [Suspect]
     Active Substance: CETIRIZINE HYDROCHLORIDE
     Indication: HYPERSENSITIVITY
     Dates: start: 20120212, end: 20201221
  3. ARMOUR THYROID 120 [Concomitant]

REACTIONS (4)
  - Pruritus [None]
  - Bradyphrenia [None]
  - Urticaria [None]
  - Physical product label issue [None]

NARRATIVE: CASE EVENT DATE: 20201228
